FAERS Safety Report 4362338-6 (Version None)
Quarter: 2004Q2

REPORT INFORMATION
  Report Type: 
  Country: None (occurrence: None)
  Receive Date: 20040521
  Receipt Date: 20040511
  Transmission Date: 20050107
  Serious: Yes (Other)
  Sender: FDA-Public Use
  Company Number: JACFRA2000000432

PATIENT
  Sex: Female

DRUGS (9)
  1. TOPIRAMATE [Suspect]
     Route: 049
  2. TOPIRAMATE [Suspect]
     Indication: EPILEPSY
     Route: 049
  3. VALPROIC ACID [Interacting]
     Route: 049
     Dates: start: 19750101
  4. VALPROIC ACID [Interacting]
     Route: 049
     Dates: start: 19750101
  5. VALPROIC ACID [Interacting]
     Indication: EPILEPSY
     Route: 049
     Dates: start: 19750101
  6. LAMICTAL [Concomitant]
     Indication: EPILEPSY
     Route: 049
     Dates: start: 19970414
  7. RIVOTRIL [Concomitant]
     Indication: EPILEPSY
     Route: 049
     Dates: start: 19980501
  8. SABRIL [Concomitant]
     Route: 049
     Dates: start: 19920901
  9. SABRIL [Concomitant]
     Indication: EPILEPSY
     Route: 049
     Dates: start: 19920901

REACTIONS (6)
  - ANOREXIA [None]
  - DRUG INTERACTION [None]
  - ENCEPHALOPATHY [None]
  - FATIGUE [None]
  - HYPERAMMONAEMIA [None]
  - PROSTRATION [None]
